FAERS Safety Report 10302693 (Version 3)
Quarter: 2014Q3

REPORT INFORMATION
  Report Type: Report from Study
  Country: AU (occurrence: AU)
  Receive Date: 20140714
  Receipt Date: 20140722
  Transmission Date: 20150326
  Serious: Yes (Other)
  Sender: FDA-Public Use
  Company Number: AU-BRISTOL-MYERS SQUIBB COMPANY-21166244

PATIENT
  Age: 84 Year
  Sex: Female

DRUGS (11)
  1. ADEFIN XL [Concomitant]
  2. CITALOPRAM [Concomitant]
     Active Substance: CITALOPRAM HYDROBROMIDE
  3. CLOPIDOGREL HYDROGEN SULFATE [Concomitant]
     Active Substance: CLOPIDOGREL BISULFATE
  4. PLAQUENIL [Concomitant]
     Active Substance: HYDROXYCHLOROQUINE SULFATE
  5. PANADOL [Concomitant]
     Active Substance: ACETAMINOPHEN
  6. FLIXOTIDE [Concomitant]
     Active Substance: FLUTICASONE PROPIONATE
  7. SLOW-K [Concomitant]
     Active Substance: POTASSIUM CHLORIDE
  8. DEPTRAN [Concomitant]
     Active Substance: DOXEPIN HYDROCHLORIDE
  9. SOMAC [Concomitant]
     Active Substance: PANTOPRAZOLE SODIUM
  10. ORENCIA [Suspect]
     Active Substance: ABATACEPT
     Indication: RHEUMATOID ARTHRITIS
     Dosage: FREQUENCY 28/7.
     Route: 042
     Dates: start: 20131105
  11. METHOTREXATE [Concomitant]
     Active Substance: METHOTREXATE

REACTIONS (1)
  - Pulmonary oedema [Unknown]

NARRATIVE: CASE EVENT DATE: 20140629
